FAERS Safety Report 8485124-4 (Version None)
Quarter: 2012Q3

REPORT INFORMATION
  Report Type: 
  Country: None (occurrence: None)
  Receive Date: 20120703
  Receipt Date: 20120626
  Transmission Date: 20120928
  Serious: Yes (Hospitalization)
  Sender: FDA-Public Use
  Company Number: US-ALEXION-A201201223

PATIENT
  Sex: Male

DRUGS (13)
  1. AMLODIPINE [Concomitant]
     Dosage: 2 MG, QD
     Route: 048
  2. OXYCONTIN [Concomitant]
     Dosage: 80 MG, Q 8 HRS
     Route: 048
  3. ACETAMINOPHEN [Concomitant]
     Dosage: UNK, PRN
     Route: 048
  4. SOLIRIS [Suspect]
     Indication: HAEMOLYTIC URAEMIC SYNDROME
     Dosage: UNK
     Route: 042
     Dates: start: 20120618
  5. FUROSEMIDE [Concomitant]
     Dosage: 20 MG, BID
     Route: 048
  6. HYDROMORPHONE HCL [Concomitant]
     Dosage: 4 MG, Q 4 HRS PRN
     Route: 048
  7. PEPCID [Concomitant]
     Dosage: 20 MG, BID
     Route: 048
  8. CARVEDILOL [Concomitant]
     Dosage: 12.5 MG, BID
     Route: 048
  9. XENADERM [Concomitant]
     Dosage: UNK, BID
     Route: 061
  10. DULCOLAX [Concomitant]
     Dosage: UNK, PRN
     Route: 048
  11. MIRALAX [Concomitant]
     Dosage: UNK, PRN
     Route: 048
  12. SENOKOT [Concomitant]
     Dosage: UNK, BID
     Route: 048
  13. PHOSLO [Concomitant]
     Dosage: 667 MG, TID
     Route: 048

REACTIONS (2)
  - HAEMOGLOBIN DECREASED [None]
  - PLATELET COUNT DECREASED [None]
